FAERS Safety Report 12500966 (Version 1)
Quarter: 2016Q2

REPORT INFORMATION
  Report Type: Report from Study
  Country: CA (occurrence: CA)
  Receive Date: 20160627
  Receipt Date: 20160627
  Transmission Date: 20160815
  Serious: Yes (Other)
  Sender: FDA-Public Use
  Company Number: CA-JNJFOC-20160621286

PATIENT
  Age: 37 Year
  Sex: Female
  Weight: 88.5 kg

DRUGS (1)
  1. REMICADE [Suspect]
     Active Substance: INFLIXIMAB
     Indication: CROHN^S DISEASE
     Route: 042
     Dates: start: 20090722

REACTIONS (1)
  - Anal abscess [Recovering/Resolving]

NARRATIVE: CASE EVENT DATE: 20160607
